FAERS Safety Report 26127013 (Version 1)
Quarter: 2025Q4

REPORT INFORMATION
  Report Type: Spontaneous
  Country: US (occurrence: US)
  Receive Date: 20251205
  Receipt Date: 20251205
  Transmission Date: 20260117
  Serious: No
  Sender: PRIMUS PHARMACEUTICALS
  Company Number: US-PRIMUS-2025-US-025368

PATIENT
  Age: 70 Year
  Sex: Female
  Weight: 75.75 kg

DRUGS (8)
  1. IMPOYZ [Suspect]
     Active Substance: CLOBETASOL PROPIONATE
     Indication: Rash
     Dosage: APPLY TOPICALLY TO RASH TWICE A DAY AS NEEDED UP TO 2 WEEKS
     Route: 061
     Dates: start: 20230712, end: 20250517
  2. ALPRAZOLAM [Concomitant]
     Active Substance: ALPRAZOLAM
  3. METFORMIN [Concomitant]
     Active Substance: METFORMIN HYDROCHLORIDE
  4. EZETIMIBE [Concomitant]
     Active Substance: EZETIMIBE
  5. PANTOPRAZOLE [Concomitant]
     Active Substance: PANTOPRAZOLE
  6. METOPROLOL SUCCINATE [Concomitant]
     Active Substance: METOPROLOL SUCCINATE
  7. ATORVASTATIN [Concomitant]
     Active Substance: ATORVASTATIN
  8. ASPIRIN [Concomitant]
     Active Substance: ASPIRIN
     Dosage: LOW DOSE

REACTIONS (2)
  - Contusion [Recovered/Resolved]
  - Skin atrophy [Not Recovered/Not Resolved]

NARRATIVE: CASE EVENT DATE: 20230101
